FAERS Safety Report 19847523 (Version 1)
Quarter: 2021Q3

REPORT INFORMATION
  Report Type: Spontaneous
  Country: US (occurrence: US)
  Receive Date: 20210917
  Receipt Date: 20210917
  Transmission Date: 20211014
  Serious: Yes (Other)
  Sender: FDA-Public Use
  Company Number: US-VIFOR (INTERNATIONAL) INC.-VIT-2021-07467

PATIENT
  Age: 52 Year
  Sex: Male
  Weight: 106 kg

DRUGS (1)
  1. MIRCERA [Suspect]
     Active Substance: METHOXY POLYETHYLENE GLYCOL-EPOETIN BETA
     Indication: NEPHROGENIC ANAEMIA
     Dosage: 2 SYRINGES
     Route: 040
     Dates: start: 20210901, end: 20210901

REACTIONS (4)
  - Dyspnoea [Recovered/Resolved]
  - Nausea [Recovered/Resolved]
  - Blood pressure increased [Unknown]
  - Drug hypersensitivity [Recovered/Resolved]

NARRATIVE: CASE EVENT DATE: 20210901
